FAERS Safety Report 19053777 (Version 1)
Quarter: 2021Q1

REPORT INFORMATION
  Report Type: Spontaneous
  Country: US (occurrence: US)
  Receive Date: 20210324
  Receipt Date: 20210324
  Transmission Date: 20210420
  Serious: No
  Sender: FDA-Public Use
  Company Number: US-TAKEDA-2021TUS016978

PATIENT
  Age: 84 Year
  Sex: Female
  Weight: 79.82 kg

DRUGS (20)
  1. HCL?ACETAMINOPHEN [Concomitant]
  2. GAMMAGARD LIQUID [Suspect]
     Active Substance: HUMAN IMMUNOGLOBULIN G
     Indication: IMMUNODEFICIENCY COMMON VARIABLE
     Dosage: 35 GRAM, Q4WEEKS
     Route: 042
     Dates: start: 20160321
  3. FAMOTIDINE. [Concomitant]
     Active Substance: FAMOTIDINE
  4. BENAZEPRIL [Concomitant]
     Active Substance: BENAZEPRIL HYDROCHLORIDE
  5. ASPIRIN. [Concomitant]
     Active Substance: ASPIRIN
  6. NEXIUM [Concomitant]
     Active Substance: ESOMEPRAZOLE MAGNESIUM
  7. CALCIUM 600 PLUS VITAMIN D3 [Concomitant]
  8. TRAMADOL [TRAMADOL HYDROCHLORIDE] [Concomitant]
     Active Substance: TRAMADOL HYDROCHLORIDE
  9. METOPROLOL. [Concomitant]
     Active Substance: METOPROLOL
  10. DIPHENHYDRAMINE. [Concomitant]
     Active Substance: DIPHENHYDRAMINE
  11. LIDOCAINE. [Concomitant]
     Active Substance: LIDOCAINE
  12. EPINEPHRINE. [Concomitant]
     Active Substance: EPINEPHRINE
  13. FLUBLOK [Concomitant]
     Active Substance: INFLUENZA A VIRUS A/CALIFORNIA/7/2009 (H1N1) RECOMBINANT HEMAGGLUTININ ANTIGEN\INFLUENZA A VIRUS A/VICTORIA/361/2011 (H3N2) RECOMBINANT HEMAGGLUTININ ANTIGEN\INFLUENZA B VIRUS B/WISCONSIN/1/2010 RECOMBINANT HEMAGGLUTININ ANTIGEN
  14. VITAMIN B [Concomitant]
     Active Substance: VITAMIN B
  15. MAPAP [Concomitant]
     Active Substance: ACETAMINOPHEN
  16. ATORVASTATIN [Concomitant]
     Active Substance: ATORVASTATIN
  17. PYRIDIUM PLUS [Concomitant]
     Active Substance: BUTABARBITAL\HYOSCYAMINE HYDROBROMIDE\PHENAZOPYRIDINE HYDROCHLORIDE
  18. SODIUM CHLORIDE IV [Concomitant]
     Active Substance: SODIUM CHLORIDE
  19. PEPCID [Concomitant]
     Active Substance: FAMOTIDINE
  20. HYDROCHLOROTHIAZIDE. [Concomitant]
     Active Substance: HYDROCHLOROTHIAZIDE

REACTIONS (1)
  - Sinusitis [Unknown]

NARRATIVE: CASE EVENT DATE: 20210312
